FAERS Safety Report 17309778 (Version 2)
Quarter: 2023Q2

REPORT INFORMATION
  Report Type: Report from Study
  Country: US (occurrence: US)
  Receive Date: 20200123
  Receipt Date: 20230420
  Transmission Date: 20230721
  Serious: No
  Sender: FDA-Public Use
  Company Number: US-KYOWAKIRIN-2020BKK000525

PATIENT

DRUGS (3)
  1. CRYSVITA [Suspect]
     Active Substance: BUROSUMAB-TWZA
     Indication: Hereditary hypophosphataemic rickets
     Dosage: 30 MG, 1X/2 WEEKS
     Route: 058
     Dates: start: 20191217
  2. CRYSVITA [Suspect]
     Active Substance: BUROSUMAB-TWZA
     Indication: Hereditary hypophosphataemic rickets
     Dosage: 40 MG, 1X/2 WEEKS
     Route: 058
     Dates: start: 20191216
  3. CRYSVITA [Suspect]
     Active Substance: BUROSUMAB-TWZA
     Dosage: 50 MG, 1X/2 WEEKS
     Route: 058
     Dates: start: 20230414

REACTIONS (2)
  - Blood phosphorus decreased [Unknown]
  - Abdominal pain upper [Unknown]

NARRATIVE: CASE EVENT DATE: 20230306
